FAERS Safety Report 10218242 (Version 3)
Quarter: 2014Q4

REPORT INFORMATION
  Report Type: Spontaneous
  Country: FR (occurrence: FR)
  Receive Date: 20140605
  Receipt Date: 20141103
  Transmission Date: 20150528
  Serious: No
  Sender: FDA-Public Use
  Company Number: FR-BRISTOL-MYERS SQUIBB COMPANY-20890745

PATIENT
  Age: 58 Year
  Sex: Female

DRUGS (5)
  1. METFORMIN HCL [Concomitant]
     Active Substance: METFORMIN HYDROCHLORIDE
     Dosage: METFORMIN WAS INCREASED TO 850 MG AT MORNING, 500 MG AT D NIGHT
  2. PERINDOPRIL ARGININE + AMLODIPINE BESILATE [Concomitant]
  3. ATENOLOL. [Concomitant]
     Active Substance: ATENOLOL
     Indication: HYPERTENSION
     Dosage: 50 MG AT MORNING
  4. ONGLYZA [Suspect]
     Active Substance: SAXAGLIPTIN HYDROCHLORIDE
     Indication: TYPE 2 DIABETES MELLITUS
     Dosage: STOPPED 1YEAR AGO
     Route: 048
     Dates: start: 2011
  5. ALTIZIDE + SPIRONOLACTONE [Concomitant]

REACTIONS (6)
  - Cough [Recovered/Resolved]
  - Dyspepsia [Recovered/Resolved]
  - Drug ineffective [Recovered/Resolved]
  - Respiratory tract irritation [Recovered/Resolved]
  - Oropharyngeal discomfort [Recovered/Resolved]
  - Gastric disorder [Recovered/Resolved]
